FAERS Safety Report 8761405 (Version 2)
Quarter: 2012Q4

REPORT INFORMATION
  Report Type: 
  Country: US (occurrence: US)
  Receive Date: 20120830
  Receipt Date: 20120905
  Transmission Date: 20130627
  Serious: Yes (Hospitalization)
  Sender: FDA-Public Use
  Company Number: US-PFIZER INC-2012205027

PATIENT
  Age: 62 Year
  Sex: Male
  Weight: 116.3 kg

DRUGS (11)
  1. SUNITINIB MALATE [Suspect]
     Indication: METASTATIC RENAL CELL CARCINOMA
     Dosage: 37.5 mg, UNK
     Route: 048
     Dates: start: 20120706, end: 20120817
  2. LOPERAMIDE HYDROCHLORIDE [Concomitant]
     Indication: DIARRHOEA
     Dosage: 2 mg, as needed
     Route: 048
     Dates: start: 20120716
  3. PEPCID [Concomitant]
     Indication: DYSPEPSIA
     Dosage: 20 mg, 2x/day
     Route: 048
     Dates: start: 20120718
  4. PROMETHAZINE [Concomitant]
     Indication: NAUSEA
     Dosage: 25 mg, q4-6 hrs as needed
     Route: 048
     Dates: start: 20120723
  5. MAGIC MOUTHWASH [Concomitant]
     Indication: MUCOSAL INFLAMMATION
     Dosage: 15 ml, q 6hrs as needed
     Route: 048
     Dates: start: 20120725
  6. OXYCODONE HYDROCHLORIDE W/PARACETAMOL [Concomitant]
     Indication: PAIN
     Dosage: 5 /325 mg, every 6 hrs prn
     Route: 048
     Dates: start: 20120819, end: 20120819
  7. ASPIRIN [Concomitant]
     Indication: CARDIOVASCULAR EVENT PROPHYLAXIS
     Dosage: 325 mg, 2 tabs daily
     Route: 048
     Dates: start: 20070101
  8. LIPITOR [Concomitant]
     Indication: BLOOD CHOLESTEROL INCREASED
     Dosage: 80 mg, daily, on hold
     Route: 048
     Dates: start: 19970101
  9. ZETIA [Concomitant]
     Indication: BLOOD CHOLESTEROL INCREASED
     Dosage: 10 mg, daily
     Route: 048
     Dates: start: 20070101
  10. ATENOLOL [Concomitant]
     Indication: HYPERTENSION
     Dosage: 25 mg, 1x/day
     Route: 048
     Dates: start: 20120702
  11. NEXIUM [Concomitant]
     Indication: DYSPEPSIA
     Dosage: 20 mg, 2x/day
     Route: 048
     Dates: start: 20120725

REACTIONS (1)
  - Cholecystitis [Recovered/Resolved]
